FAERS Safety Report 16461911 (Version 4)
Quarter: 2019Q3

REPORT INFORMATION
  Report Type: Spontaneous
  Country: US (occurrence: US)
  Receive Date: 20190621
  Receipt Date: 20190722
  Transmission Date: 20191004
  Serious: Yes (Hospitalization, Other)
  Sender: FDA-Public Use
  Company Number: US-AMGEN-USASP2019096430

PATIENT
  Age: 65 Year
  Sex: Female
  Weight: 73.47 kg

DRUGS (16)
  1. RANITIDINE. [Concomitant]
     Active Substance: RANITIDINE
     Dosage: 150 MILLIGRAM
  2. RAMIPRIL. [Concomitant]
     Active Substance: RAMIPRIL
     Dosage: 2.5 MILLIGRAM
  3. MECLIZINE [Concomitant]
     Active Substance: MECLIZINE HYDROCHLORIDE
     Dosage: 25 MICROGRAM
  4. LIOTHYRONINE [Concomitant]
     Active Substance: LIOTHYRONINE
     Dosage: 25 MICROGRAM
  5. POTASSIUM CHLORIDE. [Concomitant]
     Active Substance: POTASSIUM CHLORIDE
     Dosage: 10 MICROGRAM
  6. INVOKANA [Concomitant]
     Active Substance: CANAGLIFLOZIN
     Dosage: 100 MILLIGRAM
  7. VASCEPA [Concomitant]
     Active Substance: ICOSAPENT ETHYL
     Dosage: 1 GRAM
  8. CYCLOBENZAPRINE. [Concomitant]
     Active Substance: CYCLOBENZAPRINE
     Dosage: 10 MILLIGRAM
  9. CLOPIDOGREL [Concomitant]
     Active Substance: CLOPIDOGREL BISULFATE
     Dosage: 75 MILLIGRAM
  10. FENOFIBRIC ACID. [Concomitant]
     Active Substance: FENOFIBRIC ACID
     Dosage: 135 UNK
  11. REPATHA [Suspect]
     Active Substance: EVOLOCUMAB
     Indication: PRODUCT USED FOR UNKNOWN INDICATION
     Dosage: 140 MILLIGRAM, Q2WK
     Route: 058
     Dates: start: 20170608
  12. SYNTHROID [Concomitant]
     Active Substance: LEVOTHYROXINE SODIUM
     Dosage: 88 MILLIGRAM
  13. PLAVIX [Suspect]
     Active Substance: CLOPIDOGREL BISULFATE
     Indication: BLOOD DISORDER
     Dosage: 75 MILLIGRAM, QD
     Route: 065
  14. PANTOPRAZOLE SODIUM. [Concomitant]
     Active Substance: PANTOPRAZOLE SODIUM
     Dosage: 40 MILLIGRAM
  15. METOPROLOL TARTRATE. [Concomitant]
     Active Substance: METOPROLOL TARTRATE
     Dosage: 50 MILLIGRAM
  16. BABY ASPIRIN [Concomitant]
     Active Substance: ASPIRIN

REACTIONS (28)
  - Myalgia [Unknown]
  - Pain [Not Recovered/Not Resolved]
  - Sneezing [Unknown]
  - Tonsillar ulcer [Unknown]
  - Fatigue [Not Recovered/Not Resolved]
  - Haematemesis [Unknown]
  - Mass [Unknown]
  - Gastrooesophageal reflux disease [Unknown]
  - Insomnia [Unknown]
  - Disturbance in attention [Unknown]
  - Neuropathy peripheral [Unknown]
  - Appetite disorder [Unknown]
  - Rhinorrhoea [Unknown]
  - Sinus congestion [Unknown]
  - Dyspepsia [Unknown]
  - Neck injury [Unknown]
  - Asthenia [Unknown]
  - Headache [Unknown]
  - Mouth ulceration [Not Recovered/Not Resolved]
  - Haematuria [Not Recovered/Not Resolved]
  - Stress [Unknown]
  - Muscle spasms [Unknown]
  - Haemoptysis [Not Recovered/Not Resolved]
  - Pharyngeal ulceration [Recovering/Resolving]
  - Blood urine [Recovering/Resolving]
  - Swelling [Recovering/Resolving]
  - Dyspnoea [Unknown]
  - Oedema [Unknown]

NARRATIVE: CASE EVENT DATE: 20190507
